FAERS Safety Report 5276059-9 (Version None)
Quarter: 2007Q1

REPORT INFORMATION
  Report Type: 
  Country: None (occurrence: None)
  Receive Date: 20061213
  Receipt Date: 20060426
  Transmission Date: 20070707
  Serious: Yes (Hospitalization)
  Sender: FDA-Public Use
  Company Number: 2006UW07480

PATIENT
  Age: 75 Year
  Sex: Female
  Weight: 63.502 kg

DRUGS (1)
  1. SEROQUEL [Suspect]
     Indication: DEMENTIA
     Dosage: 12.5 MG QD; PO
     Route: 048
     Dates: start: 20060315

REACTIONS (2)
  - CARDIAC FAILURE CONGESTIVE [None]
  - INFECTION [None]
